FAERS Safety Report 22370010 (Version 1)
Quarter: 2023Q2

REPORT INFORMATION
  Report Type: Report from Study
  Country: BR (occurrence: BR)
  Receive Date: 20230526
  Receipt Date: 20230526
  Transmission Date: 20230722
  Serious: Yes (Other)
  Sender: FDA-Public Use
  Company Number: BR-CELLTRION INC.-2023BR010722

PATIENT

DRUGS (4)
  1. INFLIXIMAB [Suspect]
     Active Substance: INFLIXIMAB
     Indication: Ankylosing spondylitis
     Dosage: 5 AMPOULES EVERY 6 WEEKS
     Route: 042
     Dates: start: 20220826
  2. INFLIXIMAB [Suspect]
     Active Substance: INFLIXIMAB
     Indication: Uveitis
     Dosage: 5 AMPOULES PER MONTH
     Route: 042
  3. ENALAPRIL [Concomitant]
     Active Substance: ENALAPRIL
     Indication: Hypertension
     Dosage: 10 MG, 1 PILL PER DAY
     Route: 048
     Dates: start: 2020
  4. SIMVASTATIN [Concomitant]
     Active Substance: SIMVASTATIN
     Indication: Hypercholesterolaemia
     Dosage: 1 PILL PER DAY
     Route: 048
     Dates: start: 2021

REACTIONS (7)
  - Blindness [Unknown]
  - Condition aggravated [Unknown]
  - Eye inflammation [Unknown]
  - Visual impairment [Unknown]
  - Product prescribing issue [Unknown]
  - Intentional product use issue [Unknown]
  - Intentional product use issue [Unknown]
